FAERS Safety Report 15842684 (Version 2)
Quarter: 2019Q1

REPORT INFORMATION
  Report Type: Spontaneous
  Country: GB (occurrence: GB)
  Receive Date: 20190118
  Receipt Date: 20190128
  Transmission Date: 20190417
  Serious: Yes (Death)
  Sender: FDA-Public Use
  Company Number: PHHY2019GB010631

PATIENT
  Age: 25 Year
  Sex: Male
  Weight: 133 kg

DRUGS (1)
  1. COSENTYX [Suspect]
     Active Substance: SECUKINUMAB
     Indication: PSORIASIS
     Dosage: 300 MG, QMO
     Route: 058
     Dates: start: 201808, end: 201812

REACTIONS (1)
  - Death [Fatal]

NARRATIVE: CASE EVENT DATE: 20181226
